FAERS Safety Report 13609314 (Version 1)
Quarter: 2017Q2

REPORT INFORMATION
  Report Type: Spontaneous
  Country: US (occurrence: US)
  Receive Date: 20170602
  Receipt Date: 20170602
  Transmission Date: 20170830
  Serious: No
  Sender: FDA-Public Use
  Company Number: US-LEXICON PHARMACEUTICALS, INC-17-1606-00114

PATIENT
  Age: 47 Year
  Sex: Female

DRUGS (16)
  1. ESTRADIOL. [Concomitant]
     Active Substance: ESTRADIOL
  2. LISINOPRIL. [Concomitant]
     Active Substance: LISINOPRIL
  3. TELOTRISTAT ETHYL [Suspect]
     Active Substance: TELOTRISTAT ETHYL
     Indication: CARCINOID TUMOUR OF THE SMALL BOWEL
     Route: 048
     Dates: start: 20170403
  4. ACYCLOVIR. [Concomitant]
     Active Substance: ACYCLOVIR
  5. GABAPENTIN. [Concomitant]
     Active Substance: GABAPENTIN
  6. ZOFRAN [Concomitant]
     Active Substance: ONDANSETRON HYDROCHLORIDE
  7. VITAMIN B12 [Concomitant]
     Active Substance: CYANOCOBALAMIN
  8. SOMATULINE DEPOT [Concomitant]
     Active Substance: LANREOTIDE ACETATE
  9. VITAMIN C [Concomitant]
     Active Substance: ASCORBIC ACID
  10. SANDOSTATIN [Concomitant]
     Active Substance: OCTREOTIDE ACETATE
  11. BENADRYL ALLERGY [Concomitant]
     Active Substance: DIPHENHYDRAMINE HYDROCHLORIDE
  12. CYCLOBENZAPRINE. [Concomitant]
     Active Substance: CYCLOBENZAPRINE
  13. NORCO [Concomitant]
     Active Substance: ACETAMINOPHEN\HYDROCODONE BITARTRATE
  14. AMLODIPINE [Concomitant]
     Active Substance: AMLODIPINE BESYLATE
  15. RANITIDINE. [Concomitant]
     Active Substance: RANITIDINE
  16. TRAMADOL. [Concomitant]
     Active Substance: TRAMADOL

REACTIONS (2)
  - Abdominal distension [Recovered/Resolved]
  - Viral infection [Recovered/Resolved]

NARRATIVE: CASE EVENT DATE: 201704
